FAERS Safety Report 7629740-8 (Version None)
Quarter: 2011Q3

REPORT INFORMATION
  Report Type: 
  Country: None (occurrence: None)
  Receive Date: 20110722
  Receipt Date: 20110721
  Transmission Date: 20111222
  Serious: No
  Sender: FDA-Public Use
  Company Number: US-PFIZER INC-2011147939

PATIENT
  Age: 60 Year
  Sex: Female

DRUGS (4)
  1. METHOTREXATE SODIUM [Suspect]
     Dosage: 8 PILLS ONCE A WEEK
  2. PLAQUENIL [Suspect]
     Dosage: UNK
  3. PREDNISONE [Concomitant]
     Dosage: 10 ML, UNK
  4. CELEBREX [Suspect]

REACTIONS (6)
  - FATIGUE [None]
  - NAUSEA [None]
  - FEELING ABNORMAL [None]
  - ALOPECIA [None]
  - WEIGHT INCREASED [None]
  - AFFECT LABILITY [None]
